FAERS Safety Report 6780297-3 (Version None)
Quarter: 2010Q2

REPORT INFORMATION
  Report Type: 
  Country: None (occurrence: None)
  Receive Date: 20100618
  Receipt Date: 20100607
  Transmission Date: 20101027
  Serious: Yes (Hospitalization)
  Sender: FDA-Public Use
  Company Number: US-ELI_LILLY_AND_COMPANY-US201004005788

PATIENT
  Age: 73 Year
  Sex: Female

DRUGS (10)
  1. EVISTA [Suspect]
  2. FLAGYL [Concomitant]
  3. LASIX [Concomitant]
  4. LOPRESSOR [Concomitant]
  5. OSCAL /00108001/ [Concomitant]
  6. VITAMIN D [Concomitant]
  7. PROTONIX [Concomitant]
  8. SYNTHROID [Concomitant]
  9. NORPACE [Concomitant]
  10. PRAVACHOL [Concomitant]

REACTIONS (2)
  - INTESTINAL ISCHAEMIA [None]
  - THROMBOSIS [None]
